FAERS Safety Report 23965827 (Version 2)
Quarter: 2024Q2

REPORT INFORMATION
  Report Type: Spontaneous
  Country: US (occurrence: US)
  Receive Date: 20240612
  Receipt Date: 20240619
  Transmission Date: 20240715
  Serious: No
  Sender: FDA-Public Use
  Company Number: US-JNJFOC-20240581464

PATIENT
  Age: 47 Year
  Sex: Female

DRUGS (5)
  1. TYLENOL [Suspect]
     Active Substance: ACETAMINOPHEN
     Indication: Infusion site pain
     Route: 065
     Dates: start: 2024
  2. REMODULIN [Concomitant]
     Active Substance: TREPROSTINIL
     Indication: Pulmonary arterial hypertension
     Route: 058
     Dates: start: 2024
  3. REMODULIN [Concomitant]
     Active Substance: TREPROSTINIL
     Route: 058
     Dates: start: 2024
  4. REMODULIN [Concomitant]
     Active Substance: TREPROSTINIL
     Route: 058
     Dates: start: 202404
  5. LIDOCAINE AND PRILOCAINE [Concomitant]
     Active Substance: LIDOCAINE\PRILOCAINE
     Indication: Infusion site pain
     Route: 065
     Dates: start: 2024

REACTIONS (1)
  - Therapeutic product effect incomplete [Unknown]

NARRATIVE: CASE EVENT DATE: 20240101
